FAERS Safety Report 8344031-8 (Version None)
Quarter: 2012Q2

REPORT INFORMATION
  Report Type: 
  Country: None (occurrence: None)
  Receive Date: 20120504
  Receipt Date: 20120419
  Transmission Date: 20120825
  Serious: Yes (Hospitalization)
  Sender: FDA-Public Use
  Company Number: 2012SGN00118

PATIENT
  Age: 51 Year
  Sex: Female

DRUGS (4)
  1. BRENTUXIMAB VEDOTIN (BRENTUXIMAB VEDOTIN) INJECTION [Suspect]
     Indication: HODGKIN'S DISEASE
     Dates: start: 20120112, end: 20120305
  2. CARBOPLATIN [Concomitant]
  3. IFOSFAMIDE [Concomitant]
  4. ETOPOSIDE [Concomitant]

REACTIONS (4)
  - HYPOPHAGIA [None]
  - CELLULITIS [None]
  - FEBRILE NEUTROPENIA [None]
  - VOMITING [None]
